FAERS Safety Report 4731499-9 (Version None)
Quarter: 2005Q3

REPORT INFORMATION
  Report Type: 
  Country: None (occurrence: None)
  Receive Date: 20050721
  Receipt Date: 20050429
  Transmission Date: 20060218
  Serious: Yes (Other)
  Sender: FDA-Public Use
  Company Number: 2005067682

PATIENT
  Age: 51 Year
  Sex: Female
  Weight: 61.2356 kg

DRUGS (3)
  1. RELPAX [Suspect]
     Indication: MIGRAINE
     Dosage: 40MG, 1 IN 1 AS NECESSARY, ORAL
     Route: 048
     Dates: start: 20040101
  2. RITALIN - SLOW RELEASE (METHYLPHENIDATE HYDROCHLORIDE) [Concomitant]
  3. PROPRANOLOL HYDROCHLORIDE [Concomitant]

REACTIONS (1)
  - MIGRAINE [None]
